FAERS Safety Report 4390442-5 (Version None)
Quarter: 2004Q2

REPORT INFORMATION
  Report Type: 
  Country: None (occurrence: None)
  Receive Date: 20040630
  Receipt Date: 20040611
  Transmission Date: 20050107
  Serious: Yes (Other)
  Sender: FDA-Public Use
  Company Number: 200412617BCC

PATIENT
  Age: 64 Year
  Sex: Female
  Weight: 89.8122 kg

DRUGS (5)
  1. ASPIRIN [Suspect]
     Indication: BACK PAIN
     Dosage: SEE IMAGE
     Route: 048
     Dates: end: 20020101
  2. ASPIRIN [Suspect]
     Indication: BACK PAIN
     Dosage: SEE IMAGE
     Route: 048
     Dates: start: 20020101
  3. PROZAC [Concomitant]
  4. KLONOPIN [Concomitant]
  5. PRINIVIL [Concomitant]

REACTIONS (14)
  - AMNESIA [None]
  - ASTHENIA [None]
  - CHEST WALL PAIN [None]
  - COLONIC POLYP [None]
  - FATIGUE [None]
  - GASTRIC DISORDER [None]
  - HEPATIC CIRRHOSIS [None]
  - KNEE OPERATION [None]
  - LABORATORY TEST ABNORMAL [None]
  - NAUSEA [None]
  - PAIN [None]
  - PLATELET COUNT DECREASED [None]
  - PYREXIA [None]
  - SPLENOMEGALY [None]
